FAERS Safety Report 4549096-7 (Version None)
Quarter: 2004Q4

REPORT INFORMATION
  Report Type: 
  Country: None (occurrence: None)
  Receive Date: 20041227
  Receipt Date: 20040920
  Transmission Date: 20050328
  Serious: No
  Sender: FDA-Public Use
  Company Number: 04P-163-0273800-00

PATIENT
  Age: 57 Year
  Sex: Male
  Weight: 104.3273 kg

DRUGS (7)
  1. HUMIRA [Suspect]
     Indication: RHEUMATOID ARTHRITIS
     Dosage: 40 MG, 1 IN 2 WK, SUBCUTANEOUS
     Route: 058
     Dates: start: 20040801
  2. PREDNISONE [Concomitant]
  3. METHOTREXATE [Concomitant]
  4. ATORVASTATIN [Concomitant]
  5. FELODIPINE [Concomitant]
  6. RANITIDINE [Concomitant]
  7. ZYRTEC-D 12 HOUR [Concomitant]

REACTIONS (2)
  - HEADACHE [None]
  - JOINT SWELLING [None]
